FAERS Safety Report 7335402-7 (Version None)
Quarter: 2011Q1

REPORT INFORMATION
  Report Type: 
  Country: None (occurrence: None)
  Receive Date: 20110307
  Receipt Date: 20110117
  Transmission Date: 20110831
  Serious: Yes (Other)
  Sender: FDA-Public Use
  Company Number: PHHY2011RU09234

PATIENT
  Age: 60 Year
  Sex: Female

DRUGS (6)
  1. INDAPAMIDE [Concomitant]
  2. ATORVASTATIN CALCIUM [Concomitant]
  3. ASPIRIN [Concomitant]
  4. PIRACETAM [Concomitant]
  5. SOTAHEXAL [Suspect]
     Route: 048
  6. LOSARTAN POTASSIUM [Concomitant]

REACTIONS (1)
  - ASPHYXIA [None]
